FAERS Safety Report 17645892 (Version 1)
Quarter: 2020Q2

REPORT INFORMATION
  Report Type: Not Available
  Country: US (occurrence: US)
  Receive Date: 20200408
  Receipt Date: 20200408
  Transmission Date: 20200713
  Serious: Yes (Life-Threatening, Hospitalization, Other)
  Sender: FDA-Public Use
  Company Number: US-C B FLEET CO INC-202004-US-001393

PATIENT
  Age: 63 Year
  Sex: Male

DRUGS (1)
  1. BC (ASPIRIN\CAFFEINE) [Suspect]
     Active Substance: ASPIRIN\CAFFEINE
     Indication: HEADACHE
     Dosage: 2-3 POWDERS A DAY
     Route: 048

REACTIONS (2)
  - Gastric ulcer haemorrhage [Recovering/Resolving]
  - Incorrect product administration duration [None]
